FAERS Safety Report 5039121-1 (Version None)
Quarter: 2006Q2

REPORT INFORMATION
  Report Type: 
  Country: None (occurrence: None)
  Receive Date: 20060629
  Receipt Date: 20051018
  Transmission Date: 20061013
  Serious: Yes (Life-Threatening)
  Sender: FDA-Public Use
  Company Number: US-GILEAD-2005-0008829

PATIENT
  Sex: Female
  Weight: 53.7 kg

DRUGS (7)
  1. EMTRICITABINE [Suspect]
     Indication: HIV INFECTION
     Dates: start: 20050627, end: 20051116
  2. ATAZANAVIR [Suspect]
     Indication: HIV INFECTION
     Dates: start: 20050627, end: 20051116
  3. DIDANOSINE [Suspect]
     Indication: HIV INFECTION
     Dates: start: 20050627, end: 20051116
  4. MOTRIN [Concomitant]
     Indication: TONSILLITIS BACTERIAL
     Dates: start: 20050926, end: 20050927
  5. PENICILLIN V POTASSIUM [Concomitant]
     Dates: start: 20050927, end: 20050927
  6. FOLIC ACID [Concomitant]
     Dates: start: 20051006, end: 20051014
  7. AMOXICILLIN TRIHYDRATE [Concomitant]
     Dates: start: 20050928, end: 20051004

REACTIONS (10)
  - ABDOMINAL PAIN [None]
  - ABORTION SPONTANEOUS [None]
  - CD4 LYMPHOCYTES INCREASED [None]
  - CD8 LYMPHOCYTES INCREASED [None]
  - DRUG EXPOSURE BEFORE PREGNANCY [None]
  - DRUG EXPOSURE DURING PREGNANCY [None]
  - DRUG RESISTANCE [None]
  - T-LYMPHOCYTE COUNT INCREASED [None]
  - TONSILLITIS BACTERIAL [None]
  - VAGINAL HAEMORRHAGE [None]
